FAERS Safety Report 4750252-3 (Version None)
Quarter: 2005Q3

REPORT INFORMATION
  Report Type: 
  Country: None (occurrence: None)
  Receive Date: 20050818
  Receipt Date: 20050803
  Transmission Date: 20060218
  Serious: Yes (Hospitalization)
  Sender: FDA-Public Use
  Company Number: 11990

PATIENT
  Age: 35 Year
  Sex: Male

DRUGS (11)
  1. VINCRISTINE [Suspect]
     Indication: LYMPHOMA
     Dates: start: 20050330
  2. CYTARABINE [Suspect]
     Indication: LYMPHOMA
     Dates: end: 20050330
  3. CISPLATIN [Suspect]
     Indication: LYMPHOMA
     Dates: end: 20050330
  4. IDARUBICIN HCL [Suspect]
     Indication: LYMPHOMA
  5. CIFLOX [Suspect]
     Indication: CHRONIC SINUSITIS
  6. FLAGYL [Suspect]
     Dates: end: 20050312
  7. DEXAMETHASONE [Concomitant]
  8. METHYLPREDNISOLONE [Concomitant]
  9. ORELOX [Concomitant]
  10. TRIFLUCAN [Concomitant]
  11. TAZOCILLINE [Concomitant]

REACTIONS (2)
  - RETINOPATHY [None]
  - VISUAL ACUITY REDUCED [None]
